FAERS Safety Report 13298535 (Version 3)
Quarter: 2017Q1

REPORT INFORMATION
  Report Type: Spontaneous
  Country: TW (occurrence: TW)
  Receive Date: 20170306
  Receipt Date: 20170328
  Transmission Date: 20170428
  Serious: Yes (Death)
  Sender: FDA-Public Use
  Company Number: TW-KERYX BIOPHARMACEUTICALS, INC.-2017TW002603

PATIENT
  Age: 85 Year
  Sex: Female

DRUGS (8)
  1. NEPHOXIL [Suspect]
     Active Substance: FERRIC CITRATE ANHYDROUS
     Indication: HYPERPHOSPHATAEMIA
     Dosage: 3,000 MG PER DAY (6X500 MG)
     Route: 048
     Dates: start: 20160110, end: 20160126
  2. NEPHOXIL [Suspect]
     Active Substance: FERRIC CITRATE ANHYDROUS
     Dosage: 1,000 MG PER DAY (2X500 MG)
     Route: 048
     Dates: start: 2016, end: 20160224
  3. ANTI DIABETES [Concomitant]
     Indication: DIABETES MELLITUS
     Dosage: UNK
  4. NEPHOXIL [Suspect]
     Active Substance: FERRIC CITRATE ANHYDROUS
     Dosage: 1,000 MG PER DAY (2X500 MG)
     Route: 048
     Dates: start: 20160224, end: 2016
  5. NEPHOXIL [Suspect]
     Active Substance: FERRIC CITRATE ANHYDROUS
     Dosage: 2,000 MG PER DAY (4X500 MG)
     Route: 048
     Dates: start: 2016, end: 20161021
  6. NEPHOXIL [Suspect]
     Active Substance: FERRIC CITRATE ANHYDROUS
     Dosage: 2,000 MG PER DAY (4X500 MG)
     Route: 048
     Dates: start: 20161021, end: 2016
  7. ANTIHYPERTENSIVES [Concomitant]
     Active Substance: UNSPECIFIED INGREDIENT
     Indication: HYPERTENSION
     Dosage: UNK
  8. CALCIUM [Concomitant]
     Active Substance: CALCIUM
     Indication: HYPERPHOSPHATAEMIA
     Dosage: UNK

REACTIONS (2)
  - Sepsis [Fatal]
  - Cholelithiasis [Unknown]

NARRATIVE: CASE EVENT DATE: 20161107
